FAERS Safety Report 16719106 (Version 1)
Quarter: 2019Q3

REPORT INFORMATION
  Report Type: Spontaneous
  Country: FR (occurrence: FR)
  Receive Date: 20190820
  Receipt Date: 20190820
  Transmission Date: 20191005
  Serious: Yes (Other)
  Sender: FDA-Public Use
  Company Number: FR-AXELLIA-002640

PATIENT
  Age: 66 Year
  Sex: Male
  Weight: 76 kg

DRUGS (2)
  1. VORICONAZOLE. [Suspect]
     Active Substance: VORICONAZOLE
     Indication: FUNGAEMIA
     Dosage: (IV: 6 MG/KG EVERY 12 HRS FOR 1 DAY AND THEN, 4 MG/KG EVERY 12 HRS) AND REDUCED TO 2 MG/KG
     Route: 042
  2. AMBISOME [Suspect]
     Active Substance: AMPHOTERICIN B
     Indication: FUNGAEMIA

REACTIONS (2)
  - Neurotoxicity [Unknown]
  - Hallucination [Unknown]
